FAERS Safety Report 8908646 (Version 1)
Quarter: 2012Q4

REPORT INFORMATION
  Report Type: 
  Country: US (occurrence: US)
  Receive Date: 20121113
  Receipt Date: 20121113
  Transmission Date: 20130627
  Serious: No
  Sender: FDA-Public Use
  Company Number: US-AMGEN-USASP2012010436

PATIENT
  Age: 57 Year
  Sex: Male

DRUGS (3)
  1. ENBREL [Suspect]
     Indication: RHEUMATOID ARTHRITIS
     Dosage: 50 mg, weekly
     Dates: start: 2004, end: 201008
  2. ENBREL [Suspect]
     Dosage: 50 mg, weekly
     Route: 058
     Dates: start: 20110706, end: 20111223
  3. FUROSEMIDE [Concomitant]
     Dosage: UNK
     Dates: start: 200207

REACTIONS (2)
  - Rash [Recovered/Resolved]
  - Lymphadenopathy [Recovered/Resolved]
